FAERS Safety Report 20389945 (Version 2)
Quarter: 2022Q1

REPORT INFORMATION
  Report Type: Spontaneous
  Country: AR (occurrence: AR)
  Receive Date: 20220128
  Receipt Date: 20220208
  Transmission Date: 20220424
  Serious: Yes (Hospitalization, Other)
  Sender: FDA-Public Use
  Company Number: AR-PFIZER INC-202200089673

PATIENT
  Age: 76 Year
  Sex: Female

DRUGS (1)
  1. SOMAVERT [Suspect]
     Active Substance: PEGVISOMANT
     Dosage: UNK

REACTIONS (5)
  - Malaise [Unknown]
  - Renal disorder [Unknown]
  - Visual impairment [Not Recovered/Not Resolved]
  - Tooth loss [Unknown]
  - Asthma [Unknown]
